FAERS Safety Report 25714485 (Version 1)
Quarter: 2025Q3

REPORT INFORMATION
  Report Type: Spontaneous
  Country: EC (occurrence: EC)
  Receive Date: 20250822
  Receipt Date: 20250822
  Transmission Date: 20251020
  Serious: Yes (Death)
  Sender: ROCHE
  Company Number: EC-ROCHE-10000370004

PATIENT
  Sex: Male

DRUGS (2)
  1. AVASTIN [Suspect]
     Active Substance: BEVACIZUMAB
     Indication: Hepatocellular carcinoma
     Route: 065
  2. TECENTRIQ [Suspect]
     Active Substance: ATEZOLIZUMAB
     Indication: Hepatocellular carcinoma
     Route: 065

REACTIONS (1)
  - Death [Fatal]

NARRATIVE: CASE EVENT DATE: 20240101
